FAERS Safety Report 13430767 (Version 1)
Quarter: 2017Q2

REPORT INFORMATION
  Report Type: Spontaneous
  Country: US (occurrence: US)
  Receive Date: 20170411
  Receipt Date: 20170411
  Transmission Date: 20170830
  Serious: Yes (Other)
  Sender: FDA-Public Use
  Company Number: None

PATIENT
  Age: 61 Year
  Sex: Male
  Weight: 121.8 kg

DRUGS (1)
  1. IFOSFAMIDE. [Suspect]
     Active Substance: IFOSFAMIDE
     Dates: start: 20160516

REACTIONS (1)
  - Neurotoxicity [None]

NARRATIVE: CASE EVENT DATE: 20160523
